FAERS Safety Report 5491915-4 (Version None)
Quarter: 2007Q4

REPORT INFORMATION
  Report Type: 
  Country: None (occurrence: None)
  Receive Date: 20071022
  Receipt Date: 20071019
  Transmission Date: 20080405
  Serious: Yes (Hospitalization)
  Sender: FDA-Public Use
  Company Number: A0688472A

PATIENT
  Age: 29 Year
  Sex: Female

DRUGS (5)
  1. ALLI [Suspect]
     Indication: WEIGHT LOSS DIET
     Route: 048
     Dates: start: 20070815, end: 20071003
  2. ANTIBIOTICS [Suspect]
  3. PAIN MEDICATION [Suspect]
  4. ANTI-VIRAL MEDICATION [Suspect]
  5. ORTHO MICRON [Concomitant]

REACTIONS (8)
  - BRONCHITIS [None]
  - DECREASED APPETITE [None]
  - DRUG INTERACTION [None]
  - FLUID RETENTION [None]
  - MALAISE [None]
  - PELVIC INFLAMMATORY DISEASE [None]
  - VIRAL INFECTION [None]
  - WEIGHT INCREASED [None]
